FAERS Safety Report 4408309-2 (Version None)
Quarter: 2004Q3

REPORT INFORMATION
  Report Type: 
  Country: None (occurrence: None)
  Receive Date: 20040722
  Receipt Date: 20040709
  Transmission Date: 20050211
  Serious: Yes (Other)
  Sender: FDA-Public Use
  Company Number: 2004046786

PATIENT
  Age: 65 Year
  Sex: Male

DRUGS (8)
  1. ATORVASTATIN (ATORVASTATIN) [Suspect]
     Indication: HYPERLIPIDAEMIA
  2. CICLOSPORIN (CILOSPORIN) [Suspect]
     Indication: HEART TRANSPLANT
  3. MYCOPHENOLATE MOFETIL (MYCOPHENOLATE MOFETIL) [Concomitant]
  4. PREDNISOLONE [Concomitant]
  5. METOPROLOL (METOPROLOL) [Concomitant]
  6. LOSARTAN (LOSARTAN) [Concomitant]
  7. DOXAZOSIN MESYLATE [Concomitant]
  8. INSULIN [Concomitant]

REACTIONS (14)
  - COLON CANCER [None]
  - CYTOMEGALOVIRUS COLITIS [None]
  - DIARRHOEA [None]
  - DRUG INTERACTION [None]
  - EXCESSIVE GRANULATION TISSUE [None]
  - INTESTINAL ULCER [None]
  - MYOPATHY [None]
  - NORMOCHROMIC NORMOCYTIC ANAEMIA [None]
  - POSITRON EMISSION TOMOGRAM ABNORMAL [None]
  - PYREXIA [None]
  - RENAL IMPAIRMENT [None]
  - RHABDOMYOLYSIS [None]
  - VOMITING [None]
  - WEIGHT DECREASED [None]
